FAERS Safety Report 5902146-5 (Version None)
Quarter: 2008Q3

REPORT INFORMATION
  Report Type: 
  Country: None (occurrence: None)
  Receive Date: 20080919
  Receipt Date: 20080815
  Transmission Date: 20090109
  Serious: No
  Sender: FDA-Public Use
  Company Number: US-WYE-H05609208

PATIENT
  Age: 81 Year
  Sex: Female
  Weight: 83.99 kg

DRUGS (7)
  1. PRISTIQ [Suspect]
     Indication: DEPRESSION
     Dosage: 50 MG 1X PER 1 DAY, ORAL
     Route: 048
     Dates: start: 20080804, end: 20080811
  2. TRAMADOL HCL [Suspect]
  3. POTASSIUM CHLORIDE [Concomitant]
  4. LOMOTIL [Concomitant]
  5. VALIUM [Concomitant]
  6. PREVACID [Concomitant]
  7. LASIX [Concomitant]

REACTIONS (2)
  - HYPERHIDROSIS [None]
  - NAUSEA [None]
